FAERS Safety Report 19189560 (Version 1)
Quarter: 2021Q2

REPORT INFORMATION
  Report Type: Spontaneous
  Country: US (occurrence: US)
  Receive Date: 20210428
  Receipt Date: 20210428
  Transmission Date: 20210717
  Serious: Yes (Hospitalization)
  Sender: FDA-Public Use
  Company Number: None

PATIENT
  Age: 45 Year
  Sex: Female
  Weight: 113 kg

DRUGS (9)
  1. VITAMIN D [Concomitant]
     Active Substance: VITAMIN D NOS
  2. BENAZEPRIL [Concomitant]
     Active Substance: BENAZEPRIL HYDROCHLORIDE
  3. ODANSETRON [Concomitant]
     Active Substance: ONDANSETRON
  4. BACLOFEN PO [Concomitant]
  5. KESIMPTA [Suspect]
     Active Substance: OFATUMUMAB
     Indication: MULTIPLE SCLEROSIS
     Dosage: ?          OTHER FREQUENCY:ONCE;?
     Route: 058
     Dates: start: 20210220, end: 20210220
  6. FAMOTIDINE. [Concomitant]
     Active Substance: FAMOTIDINE
  7. BACLOFEN PUMP [Concomitant]
     Active Substance: BACLOFEN
  8. IBUPROFEN. [Concomitant]
     Active Substance: IBUPROFEN
  9. TYLENOL [Concomitant]
     Active Substance: ACETAMINOPHEN

REACTIONS (3)
  - Dystonia [None]
  - Loss of personal independence in daily activities [None]
  - Hypokalaemia [None]

NARRATIVE: CASE EVENT DATE: 20210220
